FAERS Safety Report 5368361-7 (Version None)
Quarter: 2007Q2

REPORT INFORMATION
  Report Type: 
  Country: None (occurrence: None)
  Receive Date: 20070625
  Receipt Date: 20070611
  Transmission Date: 20071010
  Serious: Yes (Other)
  Sender: FDA-Public Use
  Company Number: AT-AMGEN-US230483

PATIENT
  Age: 45 Year
  Sex: Female

DRUGS (1)
  1. ENBREL [Suspect]
     Indication: SCHNITZLER'S SYNDROME

REACTIONS (2)
  - CONDITION AGGRAVATED [None]
  - SCHNITZLER'S SYNDROME [None]
